FAERS Safety Report 24284570 (Version 1)
Quarter: 2024Q3

REPORT INFORMATION
  Report Type: Spontaneous
  Country: US (occurrence: US)
  Receive Date: 20240905
  Receipt Date: 20240905
  Transmission Date: 20241016
  Serious: No
  Sender: CORMEDIX
  Company Number: US-CORMEDIX INC.-US-COR-24-00001

PATIENT

DRUGS (1)
  1. DEFENCATH [Suspect]
     Active Substance: HEPARIN\TAUROLIDINE
     Indication: Product used for unknown indication
     Route: 065

REACTIONS (1)
  - Drug hypersensitivity [Unknown]
